FAERS Safety Report 6649753-2 (Version None)
Quarter: 2010Q1

REPORT INFORMATION
  Report Type: 
  Country: None (occurrence: None)
  Receive Date: 20100324
  Receipt Date: 20100324
  Transmission Date: 20100710
  Serious: Yes (Other)
  Sender: FDA-Public Use
  Company Number: None

PATIENT
  Sex: Female
  Weight: 54.4316 kg

DRUGS (1)
  1. MIRENA [Suspect]
     Indication: CONTRACEPTION
     Dates: start: 20061103, end: 20100315

REACTIONS (9)
  - DIZZINESS [None]
  - DYSPAREUNIA [None]
  - HAEMORRHAGE [None]
  - HEADACHE [None]
  - LOSS OF LIBIDO [None]
  - MUSCLE SPASMS [None]
  - NAUSEA [None]
  - VISION BLURRED [None]
  - VULVOVAGINAL DRYNESS [None]
